FAERS Safety Report 12747685 (Version 1)
Quarter: 2016Q3

REPORT INFORMATION
  Report Type: Spontaneous
  Country: US (occurrence: US)
  Receive Date: 20160915
  Receipt Date: 20160915
  Transmission Date: 20161109
  Serious: No
  Sender: FDA-Public Use
  Company Number: US-JAZZ-2016-US-009586

PATIENT
  Age: 44 Year
  Sex: Male

DRUGS (12)
  1. MULTIVITAMINS [Concomitant]
     Active Substance: VITAMINS
  2. ASPIRIN. [Concomitant]
     Active Substance: ASPIRIN
  3. LOSARTAN POTASSIUM AND HYDROCHLOROTHIAZIDE [Concomitant]
     Active Substance: HYDROCHLOROTHIAZIDE\LOSARTAN POTASSIUM
  4. RIZATRIPTAN. [Concomitant]
     Active Substance: RIZATRIPTAN
  5. XYREM [Suspect]
     Active Substance: SODIUM OXYBATE
     Indication: CATAPLEXY
     Dosage: DOSE ADJUSTMENTS
     Route: 048
     Dates: start: 2016, end: 2016
  6. TRAMADOL HCL [Concomitant]
     Active Substance: TRAMADOL HYDROCHLORIDE
  7. NUVIGIL [Concomitant]
     Active Substance: ARMODAFINIL
  8. TESTOSTERONE. [Concomitant]
     Active Substance: TESTOSTERONE
  9. ADVIL [Concomitant]
     Active Substance: IBUPROFEN
  10. RITALIN [Concomitant]
     Active Substance: METHYLPHENIDATE HYDROCHLORIDE
  11. XYREM [Suspect]
     Active Substance: SODIUM OXYBATE
     Indication: NARCOLEPSY
     Dosage: 2.25 G, BID
     Route: 048
     Dates: start: 201604, end: 201604
  12. XYREM [Suspect]
     Active Substance: SODIUM OXYBATE
     Dosage: 4.5 G, BID
     Route: 048
     Dates: start: 201605

REACTIONS (4)
  - Blood pressure increased [Unknown]
  - Heart rate increased [Unknown]
  - Disturbance in attention [Unknown]
  - Feeling abnormal [Unknown]

NARRATIVE: CASE EVENT DATE: 201605
